FAERS Safety Report 9920026 (Version 2)
Quarter: 2014Q1

REPORT INFORMATION
  Report Type: Report from Study
  Country: GB (occurrence: GB)
  Receive Date: 20140224
  Receipt Date: 20140224
  Transmission Date: 20141002
  Serious: Yes (Other)
  Sender: FDA-Public Use
  Company Number: GB-ABBVIE-12P-167-0980613-00

PATIENT
  Age: 62 Year
  Sex: Female
  Weight: 113 kg

DRUGS (11)
  1. HUMIRA [Suspect]
     Indication: PSORIASIS
     Route: 058
     Dates: start: 20111111, end: 20120915
  2. HUMIRA [Suspect]
     Indication: PSORIASIS
  3. RITALIN [Concomitant]
     Indication: NARCOLEPSY
     Dates: start: 1996
  4. VITAMIN C [Concomitant]
     Indication: PRODUCT USED FOR UNKNOWN INDICATION
     Dates: start: 201210
  5. TRIMOVATE [Concomitant]
     Indication: PRODUCT USED FOR UNKNOWN INDICATION
     Dosage: CREAM
     Dates: start: 201210
  6. TRIMOVATE [Concomitant]
     Dates: start: 20130615
  7. DIPROBASE [Concomitant]
     Indication: PRODUCT USED FOR UNKNOWN INDICATION
     Dates: start: 2009
  8. LISINOPRIL [Concomitant]
     Indication: PRODUCT USED FOR UNKNOWN INDICATION
     Dates: start: 20130615
  9. DOUBLEBASE [Concomitant]
     Indication: PRODUCT USED FOR UNKNOWN INDICATION
     Dates: start: 20130615
  10. CETRABEN [Concomitant]
     Indication: PRODUCT USED FOR UNKNOWN INDICATION
     Dates: start: 20130615
  11. DERMOVATE [Concomitant]
     Indication: PRODUCT USED FOR UNKNOWN INDICATION
     Dates: start: 20130615

REACTIONS (2)
  - Smear cervix abnormal [Recovered/Resolved with Sequelae]
  - Cervix carcinoma stage 0 [Unknown]
